FAERS Safety Report 20433835 (Version 2)
Quarter: 2022Q1

REPORT INFORMATION
  Report Type: Spontaneous
  Country: US (occurrence: US)
  Receive Date: 20220205
  Receipt Date: 20220326
  Transmission Date: 20220423
  Serious: No
  Sender: FDA-Public Use
  Company Number: US-SA-SAC20220201000633

PATIENT
  Age: 59 Year
  Sex: Female

DRUGS (5)
  1. AUBAGIO [Suspect]
     Active Substance: TERIFLUNOMIDE
     Indication: Multiple sclerosis
     Dosage: 14 MG, QD
     Route: 048
     Dates: start: 2013
  2. AUBAGIO [Suspect]
     Active Substance: TERIFLUNOMIDE
     Indication: Illness
  3. FOLIC ACID [Concomitant]
     Active Substance: FOLIC ACID
  4. PYRIDOXINE [Concomitant]
     Active Substance: PYRIDOXINE
  5. VITAMIN B12 [Concomitant]
     Active Substance: CYANOCOBALAMIN

REACTIONS (11)
  - COVID-19 [Unknown]
  - SARS-CoV-2 test positive [Unknown]
  - Influenza [Unknown]
  - Cough [Not Recovered/Not Resolved]
  - Illness [Not Recovered/Not Resolved]
  - Malaise [Not Recovered/Not Resolved]
  - Product use in unapproved indication [Unknown]
  - Breast prosthesis removal [Unknown]
  - Headache [Unknown]
  - Product dose omission issue [Unknown]
  - Thyroidectomy [Unknown]

NARRATIVE: CASE EVENT DATE: 20200101
